FAERS Safety Report 9485171 (Version 2)
Quarter: 2013Q3

REPORT INFORMATION
  Report Type: Spontaneous
  Country: US (occurrence: US)
  Receive Date: 20130828
  Receipt Date: 20130828
  Transmission Date: 20140515
  Serious: No
  Sender: FDA-Public Use
  Company Number: US-ABBOTT-13P-163-1089643-00

PATIENT
  Age: 52 Year
  Sex: Male
  Weight: 113.05 kg

DRUGS (2)
  1. ANDROGEL [Suspect]
     Indication: BLOOD TESTOSTERONE DECREASED
     Dosage: 2 PUMPS
     Route: 061
     Dates: start: 201302, end: 201306
  2. LISINOPRIL [Concomitant]
     Indication: HYPERTENSION

REACTIONS (2)
  - Blood testosterone decreased [Not Recovered/Not Resolved]
  - Blood testosterone decreased [Unknown]
